FAERS Safety Report 13276495 (Version 1)
Quarter: 2017Q1

REPORT INFORMATION
  Report Type: Spontaneous
  Country: GB (occurrence: GB)
  Receive Date: 20170228
  Receipt Date: 20170228
  Transmission Date: 20170428
  Serious: Yes (Other)
  Sender: FDA-Public Use
  Company Number: GB-AUROBINDO-AUR-APL-2016-14964

PATIENT
  Age: 59 Year
  Sex: Female
  Weight: 76.2 kg

DRUGS (4)
  1. COCODAMOL [Suspect]
     Active Substance: ACETAMINOPHEN\CODEINE PHOSPHATE
     Indication: PERIARTHRITIS
  2. PARACETAMOL [Suspect]
     Active Substance: ACETAMINOPHEN
     Indication: MUSCULOSKELETAL PAIN
     Route: 065
  3. COCODAMOL [Suspect]
     Active Substance: ACETAMINOPHEN\CODEINE PHOSPHATE
     Indication: PERIARTHRITIS
     Dosage: 30/50MG
     Route: 048
     Dates: start: 20161117
  4. PARACETAMOL [Suspect]
     Active Substance: ACETAMINOPHEN
     Indication: MUSCULOSKELETAL PAIN

REACTIONS (13)
  - Restlessness [Not Recovered/Not Resolved]
  - Somnolence [Unknown]
  - Abdominal pain upper [Not Recovered/Not Resolved]
  - Dizziness [Unknown]
  - Depressed mood [Unknown]
  - Abdominal rigidity [Unknown]
  - Vomiting [Unknown]
  - Thirst [Unknown]
  - Nausea [Recovering/Resolving]
  - Gait disturbance [Unknown]
  - Chest discomfort [Unknown]
  - Dyspepsia [Unknown]
  - Hunger [Unknown]

NARRATIVE: CASE EVENT DATE: 20161118
